FAERS Safety Report 24754290 (Version 2)
Quarter: 2025Q1

REPORT INFORMATION
  Report Type: Spontaneous
  Country: US (occurrence: US)
  Receive Date: 20241219
  Receipt Date: 20250312
  Transmission Date: 20250409
  Serious: Yes (Hospitalization)
  Sender: SANOFI AVENTIS
  Company Number: US-SA-2024SA306290

PATIENT
  Age: 68 Year
  Sex: Male

DRUGS (15)
  1. DUPIXENT [Suspect]
     Active Substance: DUPILUMAB
     Indication: Asthma
     Dosage: 300 MG, QOW
     Route: 058
     Dates: start: 202403
  2. PREDNISONE [Suspect]
     Active Substance: PREDNISONE
     Indication: Asthma
  3. PREDNISONE [Suspect]
     Active Substance: PREDNISONE
  4. PREDNISONE [Suspect]
     Active Substance: PREDNISONE
  5. BENADRYL [Concomitant]
     Active Substance: DIPHENHYDRAMINE HYDROCHLORIDE
  6. GABAPENTIN [Concomitant]
     Active Substance: GABAPENTIN
  7. PULMICORT TURBUHALER [Concomitant]
     Active Substance: BUDESONIDE
  8. ALBUTEROL [Concomitant]
     Active Substance: ALBUTEROL
  9. SINGULAIR [Concomitant]
     Active Substance: MONTELUKAST SODIUM
  10. WIXELA INHUB [Concomitant]
     Active Substance: FLUTICASONE PROPIONATE\SALMETEROL XINAFOATE
  11. ALLEGRA [Concomitant]
     Active Substance: FEXOFENADINE HYDROCHLORIDE
  12. SPIRIVA [Concomitant]
     Active Substance: TIOTROPIUM BROMIDE MONOHYDRATE
  13. EPIPEN [Concomitant]
     Active Substance: EPINEPHRINE
  14. NOVOLOG [Concomitant]
     Active Substance: INSULIN ASPART
  15. ADVAIR HFA [Concomitant]
     Active Substance: FLUTICASONE PROPIONATE\SALMETEROL XINAFOATE

REACTIONS (4)
  - Ulcer [Unknown]
  - Hospitalisation [Unknown]
  - Abdominal pain [Unknown]
  - Asthma [Unknown]

NARRATIVE: CASE EVENT DATE: 20240101
